FAERS Safety Report 8031327-2 (Version None)
Quarter: 2012Q1

REPORT INFORMATION
  Report Type: 
  Country: None (occurrence: None)
  Receive Date: 20120109
  Receipt Date: 20111118
  Transmission Date: 20120608
  Serious: Yes (Hospitalization)
  Sender: FDA-Public Use
  Company Number: JP-GLAXOSMITHKLINE-B0764295A

PATIENT
  Sex: Male

DRUGS (12)
  1. LAMICTAL [Suspect]
     Dosage: 200MG PER DAY
     Route: 048
     Dates: start: 20110315, end: 20110321
  2. LAMICTAL [Suspect]
     Dosage: 150MG PER DAY
     Route: 048
     Dates: start: 20101109, end: 20101130
  3. LAMICTAL [Suspect]
     Dosage: 200MG PER DAY
     Route: 048
     Dates: start: 20101201, end: 20110121
  4. LAMICTAL [Suspect]
     Dosage: 100MG PER DAY
     Route: 048
     Dates: start: 20110322, end: 20110329
  5. LAMICTAL [Suspect]
     Dosage: 50MG PER DAY
     Route: 048
     Dates: start: 20101019, end: 20101025
  6. LAMICTAL [Suspect]
     Dosage: 250MG PER DAY
     Route: 048
     Dates: start: 20110122, end: 20110222
  7. LAMICTAL [Suspect]
     Dosage: 300MG PER DAY
     Route: 048
     Dates: start: 20110223, end: 20110314
  8. DEPAKENE [Concomitant]
     Indication: EPILEPSY
     Dosage: 400MG PER DAY
     Route: 048
     Dates: start: 20101012, end: 20110329
  9. LAMICTAL [Suspect]
     Indication: EPILEPSY
     Dosage: 25MG PER DAY
     Route: 048
     Dates: start: 20101012, end: 20101018
  10. LAMICTAL [Suspect]
     Dosage: 100MG PER DAY
     Route: 048
     Dates: start: 20101102, end: 20101108
  11. LAMICTAL [Suspect]
     Dosage: 75MG PER DAY
     Route: 048
     Dates: start: 20101026, end: 20101101
  12. PHENOBARBITAL TAB [Concomitant]
     Indication: EPILEPSY
     Dosage: 60MG PER DAY
     Route: 048
     Dates: start: 20101012, end: 20110329

REACTIONS (5)
  - HALLUCINATION [None]
  - SOLILOQUY [None]
  - AGITATION [None]
  - DELUSION [None]
  - SCREAMING [None]
